FAERS Safety Report 7315481-3 (Version None)
Quarter: 2011Q1

REPORT INFORMATION
  Report Type: 
  Country: None (occurrence: None)
  Receive Date: 20110119
  Receipt Date: 20100714
  Transmission Date: 20110831
  Serious: Yes (Hospitalization)
  Sender: FDA-Public Use
  Company Number: A-NJ2010-37544

PATIENT
  Age: 36 Year
  Sex: Male

DRUGS (8)
  1. DIGOXIN [Concomitant]
  2. TRACLEER [Suspect]
     Indication: PULMONARY ARTERIAL HYPERTENSION
     Dosage: 125 MG, BID, ORAL, ORAL
     Route: 048
     Dates: start: 20100416
  3. TRACLEER [Suspect]
     Indication: PULMONARY ARTERIAL HYPERTENSION
     Dosage: 125 MG, BID, ORAL, ORAL
     Route: 048
     Dates: start: 20100101
  4. FENTANYL [Concomitant]
  5. DILAUDID [Concomitant]
  6. FOLIC ACID [Concomitant]
  7. VENTAVIS [Suspect]
     Indication: PULMONARY ARTERIAL HYPERTENSION
     Dosage: RESPIRATORY
     Route: 055
     Dates: start: 20100407
  8. VITAMIN D [Concomitant]

REACTIONS (2)
  - CHEST PAIN [None]
  - NASAL CONGESTION [None]
